FAERS Safety Report 8221717-7 (Version None)
Quarter: 2012Q1

REPORT INFORMATION
  Report Type: 
  Country: None (occurrence: None)
  Receive Date: 20120320
  Receipt Date: 20120316
  Transmission Date: 20120608
  Serious: No
  Sender: FDA-Public Use
  Company Number: US-PFIZER INC-2012067489

PATIENT
  Sex: Female
  Weight: 90.703 kg

DRUGS (2)
  1. PREMARIN [Suspect]
     Indication: MENOPAUSE
     Dosage: 0.625MG, DAILY
     Dates: start: 20020101, end: 20120201
  2. ATACAND HCT [Concomitant]
     Indication: HYPERTENSION
     Dosage: 32/12.5 MG, DAILY

REACTIONS (1)
  - HOT FLUSH [None]
